FAERS Safety Report 10463868 (Version 1)
Quarter: 2014Q3

REPORT INFORMATION
  Report Type: Spontaneous
  Country: CA (occurrence: None)
  Receive Date: 20140917
  Receipt Date: 20140917
  Transmission Date: 20150326
  Serious: Yes (Hospitalization, Other)
  Sender: FDA-Public Use
  Company Number: 2014/066

PATIENT
  Age: 54 Year
  Sex: Female

DRUGS (12)
  1. ACITRETIN [Concomitant]
     Active Substance: ACITRETIN
  2. ACETOMINOPHEN [Concomitant]
  3. CYCLOSPORINE. [Concomitant]
     Active Substance: CYCLOSPORINE
  4. DIMENHYDRINATE. [Concomitant]
     Active Substance: DIMENHYDRINATE
  5. HYDROCORTISONE CREAM [Concomitant]
     Active Substance: HYDROCORTISONE
  6. CONJUGATED ESTROGENS [Concomitant]
     Active Substance: ESTROGENS, CONJUGATED
  7. MEDROXYPROGESTERONE ACETATE. [Concomitant]
     Active Substance: MEDROXYPROGESTERONE ACETATE
  8. ZOPICLONE [Concomitant]
     Active Substance: ZOPICLONE
  9. NOSUVASTATIN [Concomitant]
  10. HYDROXYZINE [Concomitant]
     Active Substance: HYDROXYZINE\HYDROXYZINE HYDROCHLORIDE
  11. BETAMETHASONE [Concomitant]
     Active Substance: BETAMETHASONE
  12. CEPHALEXIN. [Suspect]
     Active Substance: CEPHALEXIN
     Indication: INFECTION
     Route: 048

REACTIONS (2)
  - Acute generalised exanthematous pustulosis [None]
  - Drug interaction [None]
